FAERS Safety Report 7994315-8 (Version None)
Quarter: 2011Q4

REPORT INFORMATION
  Report Type: 
  Country: None (occurrence: None)
  Receive Date: 20111217
  Receipt Date: 20111217
  Transmission Date: 20120403
  Serious: Yes (Other)
  Sender: FDA-Public Use
  Company Number: None

PATIENT
  Sex: Female

DRUGS (1)
  1. LUPRON [Suspect]
     Indication: ENDOMETRIOSIS
     Dosage: 3.75MG QMONTH IM
     Route: 030
     Dates: start: 20111102, end: 20111214

REACTIONS (2)
  - CONVULSION [None]
  - HOT FLUSH [None]
